FAERS Safety Report 7599428-0 (Version None)
Quarter: 2011Q3

REPORT INFORMATION
  Report Type: 
  Country: None (occurrence: None)
  Receive Date: 20110711
  Receipt Date: 20110303
  Transmission Date: 20111222
  Serious: No
  Sender: FDA-Public Use
  Company Number: US-BAYER-2011-022439

PATIENT
  Age: 55 Year
  Sex: Female
  Weight: 102 kg

DRUGS (6)
  1. ALEVE (CAPLET) [Suspect]
     Indication: SINUS CONGESTION
  2. SCHIZOPHRENIA MEDICATION [Concomitant]
     Dosage: UNK UNK, QD
     Route: 048
  3. ALEVE (CAPLET) [Suspect]
     Indication: SEASONAL ALLERGY
     Dosage: USED ONE ALEVE TWICE DAILY FOR 3 DAYS IN A ROW WHEN NEEDED
     Route: 048
     Dates: start: 20110101, end: 20110201
  4. ASPIRIN [Concomitant]
     Indication: ISCHAEMIC HEART DISEASE PROPHYLAXIS
     Dosage: 1 DF, QD
     Route: 048
  5. ANTIDEPRESSANTS [Concomitant]
     Dosage: UNK UNK, QD
  6. CHOLESTEROL- AND TRIGLYCERIDE REDUCERS [Concomitant]
     Dosage: UNK UNK, QD
     Route: 048

REACTIONS (1)
  - HYPERSENSITIVITY [None]
